FAERS Safety Report 8969096 (Version 1)
Quarter: 2012Q4

REPORT INFORMATION
  Report Type: 
  Country: GB (occurrence: GB)
  Receive Date: 20121218
  Receipt Date: 20121218
  Transmission Date: 20130627
  Serious: Yes (Disabling)
  Sender: FDA-Public Use
  Company Number: GB-RANBAXY-2012R1-63084

PATIENT
  Age: 23 Year
  Sex: Female
  Weight: 60 kg

DRUGS (11)
  1. SERTRALINE [Suspect]
     Indication: DEPRESSION
     Dosage: 50 mg, qd
     Route: 048
     Dates: start: 2008, end: 20121005
  2. SERTRALINE [Suspect]
     Indication: ANXIETY
  3. SERTRALINE [Suspect]
     Indication: DEPRESSION
     Dosage: UNK
     Route: 065
  4. SERTRALINE [Suspect]
     Indication: ANXIETY
  5. DEPO-PROVERA [Concomitant]
     Indication: PRODUCT USED FOR UNKNOWN INDICATION
     Dosage: UNK
     Route: 065
  6. LEVOTHYROXINE [Concomitant]
     Indication: PRODUCT USED FOR UNKNOWN INDICATION
     Dosage: UNK
     Route: 065
  7. MIRTAZAPINE [Concomitant]
     Indication: MAJOR DEPRESSION
     Dosage: UNK
     Route: 048
     Dates: start: 200701
  8. PIPAMPERONE [Concomitant]
     Indication: MAJOR DEPRESSION
     Dosage: UNK
     Route: 048
     Dates: start: 200701
  9. PROMETHAZINE [Concomitant]
     Indication: PRODUCT USED FOR UNKNOWN INDICATION
     Dosage: UNK
     Route: 048
     Dates: start: 2009, end: 2010
  10. RISPERIDONE [Concomitant]
     Indication: MAJOR DEPRESSION
     Dosage: UNK
     Route: 048
     Dates: start: 200701
  11. VENLAFAXINE [Concomitant]
     Indication: MAJOR DEPRESSION
     Dosage: UNK
     Route: 048
     Dates: start: 200701

REACTIONS (1)
  - Tic [Not Recovered/Not Resolved]
